FAERS Safety Report 25589816 (Version 1)
Quarter: 2025Q3

REPORT INFORMATION
  Report Type: Report from Study
  Country: GB (occurrence: GB)
  Receive Date: 20250722
  Receipt Date: 20250722
  Transmission Date: 20251020
  Serious: Yes (Other)
  Sender: ABBVIE
  Company Number: GB-ABBVIE-6358587

PATIENT
  Sex: Female

DRUGS (2)
  1. SKYRIZI [Suspect]
     Active Substance: RISANKIZUMAB-RZAA
     Indication: Crohn^s disease
     Dosage: 360MG/2.4ML?DOSE: 1.00 EA?LAST ADMIN DATE: 2024?FOA: SOLUTION FOR INJECTION IN CARTRIDGE
     Route: 058
     Dates: start: 20240117
  2. SKYRIZI [Suspect]
     Active Substance: RISANKIZUMAB-RZAA
     Dosage: SKYRIZI 360MG/2.4ML SOLUTION FOR INJECTION CARTRIDGE ON-BODY DEVICE
     Route: 058
     Dates: start: 20240415

REACTIONS (2)
  - Skin cancer [Unknown]
  - Arthritis [Unknown]
